FAERS Safety Report 7151060-9 (Version None)
Quarter: 2010Q4

REPORT INFORMATION
  Report Type: 
  Country: None (occurrence: None)
  Receive Date: 20101210
  Receipt Date: 20101201
  Transmission Date: 20110411
  Serious: Yes (Other)
  Sender: FDA-Public Use
  Company Number: AU-JNJFOC-20101200758

PATIENT
  Sex: Male

DRUGS (6)
  1. DURAGESIC-100 [Suspect]
     Indication: ANALGESIC THERAPY
     Route: 062
  2. DURAGESIC-100 [Suspect]
     Route: 062
  3. DURAGESIC-100 [Suspect]
     Route: 062
  4. DURAGESIC-100 [Suspect]
     Route: 062
  5. LOVAN [Concomitant]
     Indication: PANIC ATTACK
     Route: 065
  6. ALPRAZOLAM [Concomitant]
     Indication: PANIC ATTACK
     Route: 065

REACTIONS (3)
  - RESTLESS LEGS SYNDROME [None]
  - SCIATICA [None]
  - WITHDRAWAL SYNDROME [None]
